FAERS Safety Report 15894781 (Version 7)
Quarter: 2022Q2

REPORT INFORMATION
  Report Type: Spontaneous
  Country: US (occurrence: US)
  Receive Date: 20190131
  Receipt Date: 20220418
  Transmission Date: 20220721
  Serious: No
  Sender: FDA-Public Use
  Company Number: US-PFIZER INC-2019043397

PATIENT
  Age: 68 Year
  Sex: Female

DRUGS (10)
  1. LYRICA [Suspect]
     Active Substance: PREGABALIN
     Indication: Restless legs syndrome
     Dosage: 450 MG, DAILY (150MG 2 TABS BEDTIME; 150MG IN AM)
     Route: 048
     Dates: start: 2016
  2. LYRICA [Suspect]
     Active Substance: PREGABALIN
     Indication: Neuropathy peripheral
     Dosage: 450 MG, DAILY (150MG 2 TABS AT BEDTIME; 150MG IN AM) (2 CAPS AT BEDTIME/1 CAP QD AS DIRECTED)
     Route: 048
     Dates: start: 201808
  3. LYRICA [Suspect]
     Active Substance: PREGABALIN
     Indication: Neuralgia
  4. LYRICA [Suspect]
     Active Substance: PREGABALIN
     Indication: Neuritis
  5. BENAZEPRIL [Concomitant]
     Active Substance: BENAZEPRIL HYDROCHLORIDE
     Dosage: 40 MG, UNK
  6. LASIX [Concomitant]
     Active Substance: FUROSEMIDE
     Dosage: 40 MG, UNK
  7. TRAMADOL [Concomitant]
     Active Substance: TRAMADOL
     Dosage: UNK
  8. LEVOTHYROXINE [Concomitant]
     Active Substance: LEVOTHYROXINE
     Dosage: 75 UG, UNK
  9. FLEXERIL [Concomitant]
     Active Substance: CYCLOBENZAPRINE HYDROCHLORIDE
     Dosage: 5 MG, UNK
  10. ACETAMINOPHEN\HYDROCODONE [Concomitant]
     Active Substance: ACETAMINOPHEN\HYDROCODONE
     Dosage: UNK [HYDROCODONE: 7.5MG/ACETAMINOPHEN: 325 MG]

REACTIONS (4)
  - Product dispensing error [Unknown]
  - Withdrawal syndrome [Recovered/Resolved]
  - Nausea [Recovered/Resolved]
  - Insomnia [Unknown]

NARRATIVE: CASE EVENT DATE: 20180701
